FAERS Safety Report 7649327-0 (Version None)
Quarter: 2011Q3

REPORT INFORMATION
  Report Type: 
  Country: None (occurrence: None)
  Receive Date: 20110802
  Receipt Date: 20110726
  Transmission Date: 20111222
  Serious: Yes (Hospitalization, Other)
  Sender: FDA-Public Use
  Company Number: US-PFIZER INC-2011078012

PATIENT
  Sex: Female
  Weight: 140 kg

DRUGS (11)
  1. AMIODARONE HCL [Suspect]
     Indication: ARRHYTHMIA
     Dosage: 200 MG, 1X/DAY
     Route: 048
     Dates: start: 20090814, end: 20100101
  2. ASPIRIN [Concomitant]
     Indication: CARDIAC DISORDER
     Dosage: 1  1X/DAY
     Dates: start: 19960101
  3. LASIX [Concomitant]
     Indication: CARDIAC DISORDER
     Dosage: 20 MG, 1X/DAY
     Dates: start: 19960101
  4. VITAMIN TAB [Concomitant]
     Dosage: DAILY
  5. FOSINOPRIL [Concomitant]
     Indication: CARDIAC DISORDER
     Dosage: 20 MG, 1X/DAY
     Dates: start: 19960101
  6. AMIODARONE HCL [Suspect]
     Dosage: UNK
     Route: 042
     Dates: start: 20090101, end: 20090101
  7. FOSINOPRIL [Concomitant]
     Indication: BLOOD PRESSURE MANAGEMENT
  8. KLOR-CON [Concomitant]
     Indication: MUSCLE SPASMS
     Dosage: 20 MG, 1X/DAY
     Dates: start: 19960101
  9. METOPROLOL [Concomitant]
     Indication: CARDIAC DISORDER
     Dosage: 50 MG, 1X/DAY
     Dates: start: 19960101
  10. LASIX [Concomitant]
     Indication: DIURETIC THERAPY
  11. TEMAZEPAM [Concomitant]
     Indication: SLEEP DISORDER
     Dosage: 30 MG, 1X/DAY
     Dates: start: 19960101

REACTIONS (14)
  - SKIN ATROPHY [None]
  - ARRHYTHMIA [None]
  - PLEURISY [None]
  - PNEUMONIA [None]
  - PLEURAL EFFUSION [None]
  - SKIN DISCOLOURATION [None]
  - HEADACHE [None]
  - HAEMATOMA [None]
  - TOXICITY TO VARIOUS AGENTS [None]
  - CARDIAC FAILURE CONGESTIVE [None]
  - HYPOTHYROIDISM [None]
  - DECREASED APPETITE [None]
  - GOITRE [None]
  - VOMITING [None]
